FAERS Safety Report 22331525 (Version 3)
Quarter: 2023Q2

REPORT INFORMATION
  Report Type: Report from Study
  Country: KR (occurrence: KR)
  Receive Date: 20230517
  Receipt Date: 20230608
  Transmission Date: 20230722
  Serious: Yes (Hospitalization)
  Sender: FDA-Public Use
  Company Number: KR-JNJFOC-20230510444

PATIENT
  Age: 56 Year
  Sex: Male
  Weight: 68 kg

DRUGS (7)
  1. TECLISTAMAB [Suspect]
     Active Substance: TECLISTAMAB
     Indication: Plasma cell myeloma refractory
     Route: 058
     Dates: start: 20221228
  2. TECLISTAMAB [Suspect]
     Active Substance: TECLISTAMAB
     Dosage: 0.66 V
     Route: 058
     Dates: end: 20230427
  3. HYDROCORTISONE [Concomitant]
     Active Substance: HYDROCORTISONE
     Route: 042
     Dates: start: 20230506, end: 20230506
  4. HEPAMERZ [ORNITHINE] [Concomitant]
     Route: 042
     Dates: start: 20230504, end: 20230506
  5. HEPAMERZ [ORNITHINE] [Concomitant]
     Route: 042
     Dates: start: 20230503, end: 20230504
  6. HEPAMERZ [ORNITHINE] [Concomitant]
     Route: 042
     Dates: start: 20230507
  7. PROFA [Concomitant]
     Route: 042
     Dates: start: 20230502, end: 20230506

REACTIONS (4)
  - Tumour lysis syndrome [Recovered/Resolved]
  - Neurotoxicity [Recovered/Resolved]
  - Cellulitis [Recovered/Resolved]
  - Cytokine release syndrome [Recovered/Resolved]

NARRATIVE: CASE EVENT DATE: 20230502
